FAERS Safety Report 9042415 (Version 1)
Quarter: 2013Q1

REPORT INFORMATION
  Report Type: Report from Study
  Country: US (occurrence: US)
  Receive Date: 20130129
  Receipt Date: 20130129
  Transmission Date: 20140127
  Serious: No
  Sender: FDA-Public Use
  Company Number: US-ABBOTT-12P-163-0908015-00

PATIENT
  Age: 66 Year
  Sex: Male

DRUGS (12)
  1. HUMIRA 40 MG/0.8 ML PEN [Suspect]
     Indication: PSORIATIC ARTHROPATHY
     Dates: start: 201201
  2. HCTZ [Concomitant]
     Indication: PRODUCT USED FOR UNKNOWN INDICATION
  3. PLAVIX [Concomitant]
     Indication: PRODUCT USED FOR UNKNOWN INDICATION
  4. CRESTOR [Concomitant]
     Indication: PRODUCT USED FOR UNKNOWN INDICATION
  5. CITALOPRAM [Concomitant]
     Indication: PRODUCT USED FOR UNKNOWN INDICATION
  6. CLOBEX [Concomitant]
     Indication: PSORIASIS
  7. HYDROCORTISONE [Concomitant]
     Indication: PSORIASIS
  8. HALOBETASOL 0.5% [Concomitant]
     Indication: PSORIASIS
  9. ATENOLOL [Concomitant]
     Indication: PRODUCT USED FOR UNKNOWN INDICATION
  10. ATENOLOL [Concomitant]
  11. ALEVE [Concomitant]
     Indication: PRODUCT USED FOR UNKNOWN INDICATION
  12. ALEVE [Concomitant]

REACTIONS (3)
  - Dyspnoea [Unknown]
  - Chest pain [Recovered/Resolved]
  - Musculoskeletal pain [Recovered/Resolved]
